FAERS Safety Report 4316695-7 (Version None)
Quarter: 2004Q1

REPORT INFORMATION
  Report Type: 
  Country: None (occurrence: None)
  Receive Date: 20040311
  Receipt Date: 20040303
  Transmission Date: 20041129
  Serious: Yes (Death)
  Sender: FDA-Public Use
  Company Number: 163-20785-03120065

PATIENT
  Age: 65 Year
  Sex: Male

DRUGS (7)
  1. THALOMID [Suspect]
     Indication: HEPATIC NEOPLASM MALIGNANT
     Dosage: 200 MG, DAILY, ORAL
     Route: 048
     Dates: start: 20031014, end: 20031101
  2. MORPHINE SULFATE LIQUID (MORPHINE SULFATE) [Concomitant]
  3. LORAZEPAM [Concomitant]
  4. PROMETHAZINE [Concomitant]
  5. VITAMINS (VITAMINS) [Concomitant]
  6. PREVACID [Concomitant]
  7. EPIVIR [Concomitant]

REACTIONS (2)
  - HEPATIC NEOPLASM MALIGNANT [None]
  - MALIGNANT NEOPLASM PROGRESSION [None]
